FAERS Safety Report 4305727-8 (Version None)
Quarter: 2004Q1

REPORT INFORMATION
  Report Type: 
  Country: None (occurrence: None)
  Receive Date: 20040225
  Receipt Date: 20040212
  Transmission Date: 20041129
  Serious: Yes (Life-Threatening, Hospitalization)
  Sender: FDA-Public Use
  Company Number: HQWYE379521OCT03

PATIENT
  Age: 46 Year
  Sex: Female

DRUGS (3)
  1. PANTOZOL (PANTOPRAZOLE, TABLET, DELAYED RELEASE) [Suspect]
     Indication: HELICOBACTER GASTRITIS
     Dosage: 40 MG 2 X PER 1 DAY, ORAL
     Route: 048
     Dates: start: 20030520, end: 20030526
  2. AMOXICILLIN [Suspect]
     Indication: HELICOBACTER GASTRITIS
     Dosage: 1000 MG 2 X PER 1 DAY, ORAL
     Route: 048
     Dates: start: 20030520, end: 20030526
  3. CLARITHROMYCIN [Suspect]
     Indication: HELICOBACTER GASTRITIS
     Dosage: 500 MG 2 X PER 1 DAY, ORAL
     Route: 048
     Dates: start: 20030520, end: 20030526

REACTIONS (3)
  - ALOPECIA AREATA [None]
  - ANTINUCLEAR ANTIBODY POSITIVE [None]
  - HEPATITIS FULMINANT [None]
